FAERS Safety Report 6365155-0 (Version None)
Quarter: 2009Q3

REPORT INFORMATION
  Report Type: 
  Country: None (occurrence: None)
  Receive Date: 20090919
  Receipt Date: 20090806
  Transmission Date: 20100115
  Serious: No
  Sender: FDA-Public Use
  Company Number: US-ABBOTT-09P-163-0590200-00

PATIENT
  Sex: Female
  Weight: 57.658 kg

DRUGS (2)
  1. HUMIRA [Suspect]
     Indication: RHEUMATOID ARTHRITIS
     Route: 058
     Dates: start: 20080401, end: 20090601
  2. HUMIRA [Suspect]
     Route: 058
     Dates: start: 20090701

REACTIONS (3)
  - INFLUENZA [None]
  - KIDNEY INFECTION [None]
  - PYREXIA [None]
